FAERS Safety Report 25274860 (Version 1)
Quarter: 2025Q2

REPORT INFORMATION
  Report Type: Spontaneous
  Country: US (occurrence: US)
  Receive Date: 20250506
  Receipt Date: 20250506
  Transmission Date: 20250716
  Serious: Yes (Other)
  Sender: GILEAD
  Company Number: US-GILEAD-2025-0712056

PATIENT
  Age: 24 Year
  Sex: Male

DRUGS (3)
  1. TRUVADA [Suspect]
     Active Substance: EMTRICITABINE\TENOFOVIR DISOPROXIL FUMARATE
     Indication: Prophylaxis against HIV infection
     Route: 065
     Dates: start: 202209
  2. DOXYCYCLINE [Concomitant]
     Active Substance: DOXYCYCLINE
     Indication: Chlamydial infection
     Dates: start: 202210
  3. RALTEGRAVIR [Concomitant]
     Active Substance: RALTEGRAVIR

REACTIONS (1)
  - Immunosuppression [Unknown]
